FAERS Safety Report 4661048-5 (Version None)
Quarter: 2005Q2

REPORT INFORMATION
  Report Type: 
  Country: None (occurrence: None)
  Receive Date: 20050511
  Receipt Date: 20050503
  Transmission Date: 20051028
  Serious: Yes (Death)
  Sender: FDA-Public Use
  Company Number: 163-20785-05030449

PATIENT
  Age: 49 Year
  Sex: Male

DRUGS (1)
  1. THALOMID [Suspect]
     Indication: COLON CANCER
     Dosage: 100-200MG, DAILY, ORAL
     Route: 048
     Dates: start: 20020912, end: 20030101

REACTIONS (1)
  - RESPIRATORY FAILURE [None]
